FAERS Safety Report 4660237-3 (Version None)
Quarter: 2005Q2

REPORT INFORMATION
  Report Type: 
  Country: None (occurrence: None)
  Receive Date: 20050427
  Receipt Date: 20050118
  Transmission Date: 20051028
  Serious: No
  Sender: FDA-Public Use
  Company Number: 211806

PATIENT
  Age: 42 Year
  Sex: Female
  Weight: 82.5 kg

DRUGS (8)
  1. XOLAIR [Suspect]
     Indication: ASTHMA
     Dosage: 375 MG, 2/MONTH, SUBCUTANEOUS
     Route: 058
     Dates: start: 20041201
  2. PREDNISONE [Concomitant]
  3. ADVAIR DISKUS (SALMETEROL XINAFOATE, FLUTICASONE PROPIONATE) [Concomitant]
  4. ALBUTEROL (ALBUTEROL, ALBUTEROL SULFATE) [Concomitant]
  5. FOSAMAX [Concomitant]
  6. HYDROCHLOROTHIAZIDE [Concomitant]
  7. ZANTAC [Concomitant]
  8. ALLEGRA [Concomitant]

REACTIONS (2)
  - INJECTION SITE ERYTHEMA [None]
  - WHEEZING [None]
